FAERS Safety Report 15608639 (Version 1)
Quarter: 2018Q4

REPORT INFORMATION
  Report Type: Spontaneous
  Country: DK (occurrence: DK)
  Receive Date: 20181112
  Receipt Date: 20181112
  Transmission Date: 20190205
  Serious: Yes (Disabling)
  Sender: FDA-Public Use
  Company Number: DK-SA-2018SA310043

PATIENT
  Age: 41 Year
  Sex: Female

DRUGS (7)
  1. BETNOVAT [BETAMETHASONE VALERATE] [Concomitant]
     Indication: ECZEMA
     Dosage: STRENGTH: 1 MG/G.
     Route: 003
     Dates: start: 20120906
  2. ARTELAC [HYPROMELLOSE] [Concomitant]
     Indication: DRY EYE
     Dosage: STRENGTH: 3.2 MG/ML.
     Route: 050
     Dates: start: 20180320
  3. ELOCON [Concomitant]
     Active Substance: MOMETASONE FUROATE
     Indication: ECZEMA
     Dosage: STRENGTH: 0,1 %.
     Route: 003
     Dates: start: 20150424
  4. DUPIXENT [Suspect]
     Active Substance: DUPILUMAB
     Indication: DERMATITIS ATOPIC
     Dosage: STRENGTH: 300 MG.
     Route: 058
     Dates: start: 20180809, end: 20181023
  5. VENTOLINE [SALBUTAMOL SULFATE] [Concomitant]
     Active Substance: ALBUTEROL SULFATE
     Indication: ASTHMA
     Dosage: STRENGTH: 0.2 MG IN DISCO. DOSAGE: 1-2 P.N.
     Route: 055
     Dates: start: 20120824
  6. BUFOMIX EASYHALER [Concomitant]
     Active Substance: BUDESONIDE\FORMOTEROL FUMARATE
     Indication: ASTHMA
     Dosage: 9+320 MICROGRAMS/DOSE
     Route: 055
     Dates: start: 20150903
  7. DERMOVAT [CLOBETASOL PROPIONATE] [Concomitant]
     Indication: ECZEMA
     Dosage: STRENGTH: 0,5 MG/G. DOSAGE: 1 APPLICATION, TWICE DAILY
     Route: 003
     Dates: start: 20120720

REACTIONS (3)
  - Eye pain [Not Recovered/Not Resolved]
  - Dry eye [Not Recovered/Not Resolved]
  - Eye allergy [Not Recovered/Not Resolved]

NARRATIVE: CASE EVENT DATE: 201810
